FAERS Safety Report 9279705 (Version 2)
Quarter: 2013Q3

REPORT INFORMATION
  Report Type: Report from Study
  Country: DE (occurrence: DE)
  Receive Date: 20130509
  Receipt Date: 20130805
  Transmission Date: 20140515
  Serious: Yes (Hospitalization)
  Sender: FDA-Public Use
  Company Number: DE-ROCHE-1221536

PATIENT
  Age: 54 Year
  Sex: Male
  Weight: 78 kg

DRUGS (11)
  1. BEVACIZUMAB [Suspect]
     Indication: COLORECTAL CANCER METASTATIC
     Route: 042
     Dates: start: 20130320, end: 20130717
  2. OXALIPLATIN [Concomitant]
     Indication: COLORECTAL CANCER METASTATIC
     Route: 042
     Dates: start: 20130320
  3. 5-FLUOROURACIL [Concomitant]
     Indication: COLORECTAL CANCER METASTATIC
     Route: 042
     Dates: start: 20130320
  4. FOLINIC ACID [Concomitant]
     Indication: COLORECTAL CANCER METASTATIC
     Route: 042
     Dates: start: 20130320
  5. DEXAMETHASON [Concomitant]
     Indication: VOMITING
     Route: 042
     Dates: start: 20130320
  6. DEXAMETHASON [Concomitant]
     Route: 048
     Dates: start: 20130531
  7. GRANISETRON [Concomitant]
     Indication: VOMITING
     Route: 042
     Dates: start: 20130320
  8. PANTOPRAZOL [Concomitant]
     Route: 048
     Dates: start: 20130531
  9. ENALAPRIL [Concomitant]
     Route: 048
     Dates: start: 20130531
  10. LORAZEPAM [Concomitant]
     Route: 048
     Dates: start: 20130531
  11. AMPHOTERICIN B [Concomitant]
     Route: 048
     Dates: start: 20130531

REACTIONS (8)
  - Abdominal pain lower [Recovering/Resolving]
  - Urinary tract infection [Unknown]
  - Laryngitis [Unknown]
  - Brain oedema [Unknown]
  - Oropharyngeal candidiasis [Not Recovered/Not Resolved]
  - Cholelithiasis [Unknown]
  - Acute tonsillitis [Unknown]
  - Abdominal pain [Recovering/Resolving]
